FAERS Safety Report 8242808-0 (Version None)
Quarter: 2012Q1

REPORT INFORMATION
  Report Type: 
  Country: None (occurrence: None)
  Receive Date: 20120329
  Receipt Date: 20120321
  Transmission Date: 20120608
  Serious: Yes (Hospitalization)
  Sender: FDA-Public Use
  Company Number: PHHY2012RS024890

PATIENT
  Age: 3 Year
  Sex: Male
  Weight: 15 kg

DRUGS (5)
  1. CORTICOSTEROID NOS [Concomitant]
  2. PENICILLIN [Concomitant]
  3. METHYLPREDNISOLONE [Concomitant]
  4. AMOXICILLIN AND CLAVULANATE POTASSIUM [Concomitant]
  5. CEFTRIAXONE [Suspect]
     Indication: PNEUMONIA
     Dosage: 100 MG/KG, UNK

REACTIONS (6)
  - NEPHROLITHIASIS [None]
  - ABDOMINAL PAIN [None]
  - ABDOMINAL RIGIDITY [None]
  - HYDRONEPHROSIS [None]
  - VOMITING [None]
  - ABDOMINAL TENDERNESS [None]
